FAERS Safety Report 15716381 (Version 1)
Quarter: 2018Q4

REPORT INFORMATION
  Report Type: Spontaneous
  Country: RO (occurrence: RO)
  Receive Date: 20181213
  Receipt Date: 20181213
  Transmission Date: 20190205
  Serious: Yes (Life-Threatening, Hospitalization, Other)
  Sender: FDA-Public Use
  Company Number: RO-ABBVIE-18K-135-2589754-00

PATIENT
  Age: 64 Year
  Sex: Female

DRUGS (5)
  1. HUMIRA [Suspect]
     Active Substance: ADALIMUMAB
     Indication: RHEUMATOID ARTHRITIS
     Route: 058
     Dates: start: 20170907, end: 20180830
  2. LEFLUNOMIDE. [Concomitant]
     Active Substance: LEFLUNOMIDE
     Indication: RHEUMATOID ARTHRITIS
     Route: 048
     Dates: start: 20101001
  3. DICLOTARD [Concomitant]
     Indication: RHEUMATOID ARTHRITIS
     Route: 048
     Dates: start: 20100930
  4. FERROSI SULFAS [Concomitant]
     Indication: ANAEMIA
     Route: 048
     Dates: start: 20180906
  5. ALPHA D3 [Concomitant]
     Active Substance: ALFACALCIDOL
     Indication: RHEUMATOID ARTHRITIS
     Route: 048
     Dates: start: 20170907

REACTIONS (2)
  - Cerebrovascular accident [Recovering/Resolving]
  - Thalamus haemorrhage [Unknown]

NARRATIVE: CASE EVENT DATE: 20170907
